FAERS Safety Report 10413422 (Version 2)
Quarter: 2014Q3

REPORT INFORMATION
  Report Type: Spontaneous
  Country: FR (occurrence: FR)
  Receive Date: 20140827
  Receipt Date: 20140910
  Transmission Date: 20150326
  Serious: Yes (Other)
  Sender: FDA-Public Use
  Company Number: FR-GLAXOSMITHKLINE-B1025627A

PATIENT
  Sex: Female

DRUGS (1)
  1. REQUIP [Suspect]
     Active Substance: ROPINIROLE HYDROCHLORIDE
     Indication: PARKINSON^S DISEASE
     Route: 048
     Dates: start: 201211, end: 201403

REACTIONS (11)
  - Impulse-control disorder [Recovered/Resolved with Sequelae]
  - Decreased interest [Recovered/Resolved with Sequelae]
  - Aggression [Recovered/Resolved with Sequelae]
  - Hallucination [Recovered/Resolved]
  - Food aversion [Recovered/Resolved with Sequelae]
  - Depression [Not Recovered/Not Resolved]
  - Insomnia [Recovered/Resolved with Sequelae]
  - Decreased appetite [Recovered/Resolved with Sequelae]
  - Gambling [Recovered/Resolved with Sequelae]
  - Psychomotor hyperactivity [Recovered/Resolved with Sequelae]
  - Compulsive shopping [Recovered/Resolved with Sequelae]

NARRATIVE: CASE EVENT DATE: 2013
